FAERS Safety Report 15948242 (Version 1)
Quarter: 2019Q1

REPORT INFORMATION
  Report Type: Spontaneous
  Country: FR (occurrence: FR)
  Receive Date: 20190212
  Receipt Date: 20190212
  Transmission Date: 20190417
  Serious: Yes (Other)
  Sender: FDA-Public Use
  Company Number: FR-ROCHE-2263882

PATIENT
  Age: 58 Year
  Sex: Male
  Weight: 77 kg

DRUGS (6)
  1. AVASTIN [Suspect]
     Active Substance: BEVACIZUMAB
     Indication: LUNG ADENOCARCINOMA
     Route: 042
     Dates: start: 20180605
  2. PREGABALINE [Concomitant]
     Active Substance: PREGABALIN
     Route: 065
  3. LEVETIRACETAM. [Concomitant]
     Active Substance: LEVETIRACETAM
     Route: 065
  4. PACLITAXEL HOSPIRA [Concomitant]
     Active Substance: PACLITAXEL
     Route: 065
  5. KARDEGIC [Suspect]
     Active Substance: ASPIRIN DL-LYSINE
     Indication: CEREBROVASCULAR ACCIDENT
     Route: 048
     Dates: start: 201711
  6. ESOMEPRAZOLE. [Concomitant]
     Active Substance: ESOMEPRAZOLE MAGNESIUM
     Route: 065

REACTIONS (4)
  - Epistaxis [Recovered/Resolved]
  - Anaemia [Recovered/Resolved]
  - Haemoptysis [Recovered/Resolved]
  - Melaena [Recovered/Resolved]

NARRATIVE: CASE EVENT DATE: 20180907
